FAERS Safety Report 8924513 (Version 3)
Quarter: 2013Q3

REPORT INFORMATION
  Report Type: Spontaneous
  Country: US (occurrence: US)
  Receive Date: 20121126
  Receipt Date: 20130920
  Transmission Date: 20140515
  Serious: Yes (Death, Other)
  Sender: FDA-Public Use
  Company Number: US-PFIZER INC-2012278418

PATIENT
  Age: 60 Year
  Sex: Male

DRUGS (4)
  1. SUTENT [Suspect]
     Indication: METASTATIC RENAL CELL CARCINOMA
     Dosage: 50 MG, 1X/DAY
     Dates: start: 201207
  2. SUTENT [Suspect]
     Dosage: 37 MG, 1X/DAY
     Route: 048
  3. SUTENT [Suspect]
     Dosage: 25 MG, 1X/DAY
  4. SUTENT [Suspect]
     Dosage: 12.5 MG, 1X/DAY

REACTIONS (4)
  - Cardiac arrest [Fatal]
  - Abasia [Unknown]
  - Pain in extremity [Recovered/Resolved]
  - Palmar-plantar erythrodysaesthesia syndrome [Recovered/Resolved]
